FAERS Safety Report 6416918-4 (Version None)
Quarter: 2009Q4

REPORT INFORMATION
  Report Type: 
  Country: None (occurrence: None)
  Receive Date: 20091023
  Receipt Date: 20091012
  Transmission Date: 20100525
  Serious: Yes (Hospitalization)
  Sender: FDA-Public Use
  Company Number: 2009SP031531

PATIENT
  Sex: Male

DRUGS (1)
  1. CHLORPHENIRAMINE MALEATE [Suspect]
     Dosage: PO
     Route: 048

REACTIONS (5)
  - BENIGN PROSTATIC HYPERPLASIA [None]
  - CHRONIC OBSTRUCTIVE PULMONARY DISEASE [None]
  - DIABETES MELLITUS [None]
  - DRUG ADMINISTRATION ERROR [None]
  - PEPTIC ULCER [None]
